FAERS Safety Report 4454689-1 (Version None)
Quarter: 2004Q3

REPORT INFORMATION
  Report Type: 
  Country: None (occurrence: None)
  Receive Date: 20040825
  Receipt Date: 20040702
  Transmission Date: 20050211
  Serious: Yes (Other)
  Sender: FDA-Public Use
  Company Number: 2004044691

PATIENT

DRUGS (3)
  1. CAUDET (AMLODIPINE, ATORVASTATIN) [Suspect]
     Indication: ILL-DEFINED DISORDER
     Dosage: 5/10 MILLIGRAM
     Dates: start: 20040507, end: 20040520
  2. ATORVASTATIN (ATORVASTATIN) [Concomitant]
  3. AMLODIPINE BESYLATE [Concomitant]

REACTIONS (5)
  - ALANINE AMINOTRANSFERASE INCREASED [None]
  - ASTHENIA [None]
  - CHILLS [None]
  - JAUNDICE [None]
  - PYREXIA [None]
